FAERS Safety Report 21044625 (Version 1)
Quarter: 2022Q3

REPORT INFORMATION
  Report Type: Report from Study
  Country: US (occurrence: US)
  Receive Date: 20220705
  Receipt Date: 20220705
  Transmission Date: 20221027
  Serious: Yes (Other)
  Sender: FDA-Public Use
  Company Number: US-TAKEDA-2022TUS043662

PATIENT
  Sex: Female

DRUGS (35)
  1. TEDUGLUTIDE [Suspect]
     Active Substance: TEDUGLUTIDE
     Indication: Short-bowel syndrome
     Dosage: 2.9 MILLIGRAM, QD
     Route: 042
     Dates: start: 20190213, end: 20200826
  2. TEDUGLUTIDE [Suspect]
     Active Substance: TEDUGLUTIDE
     Indication: Short-bowel syndrome
     Dosage: 2.9 MILLIGRAM, QD
     Route: 042
     Dates: start: 20190213, end: 20200826
  3. TEDUGLUTIDE [Suspect]
     Active Substance: TEDUGLUTIDE
     Indication: Short-bowel syndrome
     Dosage: 2.9 MILLIGRAM, QD
     Route: 042
     Dates: start: 20190213, end: 20200826
  4. TEDUGLUTIDE [Suspect]
     Active Substance: TEDUGLUTIDE
     Indication: Short-bowel syndrome
     Dosage: 2.9 MILLIGRAM, QD
     Route: 042
     Dates: start: 20190213, end: 20200826
  5. CYANOCOBALAMIN [Concomitant]
     Active Substance: CYANOCOBALAMIN
     Indication: Hypovitaminosis
     Dosage: 1000 MICROGRAM, QD
     Route: 048
     Dates: start: 20180111, end: 20180825
  6. LOMOTIL [Concomitant]
     Active Substance: ATROPINE SULFATE\DIPHENOXYLATE HYDROCHLORIDE
     Indication: Diarrhoea
     Dosage: 2.5 MILLIGRAM, TID
     Route: 048
     Dates: start: 20180411
  7. PEPCID [Concomitant]
     Active Substance: FAMOTIDINE
     Indication: Malabsorption
     Dosage: 20 MILLIGRAM
     Route: 048
     Dates: start: 20171127, end: 20180825
  8. PEPCID [Concomitant]
     Active Substance: FAMOTIDINE
     Dosage: 40 MILLIGRAM, BID
     Route: 048
     Dates: start: 20180826, end: 20180829
  9. CULTURELLE [Concomitant]
     Active Substance: LACTOBACILLUS RHAMNOSUS
     Indication: Crohn^s disease
     Dosage: 1 DOSAGE FORM, BID
     Route: 048
     Dates: start: 20150218, end: 20180825
  10. IMODIUM [Concomitant]
     Active Substance: LOPERAMIDE HYDROCHLORIDE
     Indication: Malabsorption
     Dosage: 4 MILLIGRAM
     Route: 048
     Dates: start: 20171127, end: 20180829
  11. IMODIUM [Concomitant]
     Active Substance: LOPERAMIDE HYDROCHLORIDE
     Dosage: UNK
     Route: 050
     Dates: start: 20180829
  12. MINERALS\VITAMINS [Concomitant]
     Active Substance: MINERALS\VITAMINS
     Indication: Hypovitaminosis
     Dosage: 1 DOSAGE FORM
     Route: 048
     Dates: start: 20151028
  13. VIVONEX T.E.N. [Concomitant]
     Indication: Weight decreased
     Dosage: 50 MILLILITER
     Route: 048
     Dates: start: 20180111
  14. OPIUM [Concomitant]
     Active Substance: OPIUM
     Indication: Malabsorption
     Dosage: 0.20 UNK
     Route: 048
     Dates: start: 20170416, end: 20180825
  15. CREON [Concomitant]
     Active Substance: PANCRELIPASE AMYLASE\PANCRELIPASE LIPASE\PANCRELIPASE PROTEASE
     Indication: Malnutrition
     Dosage: 2 DOSAGE FORM, QD
     Route: 048
     Dates: start: 20171127, end: 20181025
  16. MEPHYTON [Concomitant]
     Active Substance: PHYTONADIONE
     Indication: Iron deficiency anaemia
     Dosage: 5 MILLIGRAM, QD
     Route: 048
     Dates: start: 20171127, end: 20181125
  17. SELENIUM [Concomitant]
     Active Substance: SELENIUM
     Indication: Mineral deficiency
     Dosage: 200 MICROGRAM, QD
     Route: 048
     Dates: start: 20171127, end: 20180825
  18. SELENIUM [Concomitant]
     Active Substance: SELENIUM
     Dosage: UNK
     Route: 048
     Dates: start: 20180826
  19. TAMOXIFEN [Concomitant]
     Active Substance: TAMOXIFEN
     Indication: Uterine cancer
     Dosage: 10 MILLIGRAM, QD
     Route: 048
     Dates: start: 20171127, end: 20181010
  20. TAMOXIFEN [Concomitant]
     Active Substance: TAMOXIFEN
     Indication: Hormone level abnormal
     Dosage: 10 MILLIGRAM, QD
     Route: 048
     Dates: start: 20180826
  21. TAMOXIFEN [Concomitant]
     Active Substance: TAMOXIFEN
     Dosage: 10 MILLIGRAM, QD
     Route: 048
     Dates: start: 20181010
  22. POTASSIUM CHLORIDE [Concomitant]
     Active Substance: POTASSIUM CHLORIDE
     Indication: Hypophosphataemia
     Dosage: 100 MILLILITER, QD
     Route: 042
     Dates: start: 20200825, end: 20200826
  23. POTASSIUM CHLORIDE [Concomitant]
     Active Substance: POTASSIUM CHLORIDE
     Dosage: UNK
     Route: 048
     Dates: start: 20200902
  24. SODIUM CHLORIDE [Concomitant]
     Active Substance: SODIUM CHLORIDE
     Indication: Vascular device infection
     Dosage: 1000 MILLILITER, QD
     Route: 042
     Dates: start: 20180825, end: 20180829
  25. SODIUM CHLORIDE [Concomitant]
     Active Substance: SODIUM CHLORIDE
     Indication: Sepsis
  26. SODIUM CHLORIDE [Concomitant]
     Active Substance: SODIUM CHLORIDE
     Indication: Pyrexia
  27. LOVENOX [Concomitant]
     Active Substance: ENOXAPARIN SODIUM
     Indication: Superficial vein thrombosis
     Dosage: 40 MILLIGRAM, QD
     Route: 058
     Dates: start: 20180826, end: 20180829
  28. CEFEPIME [Concomitant]
     Active Substance: CEFEPIME HYDROCHLORIDE
     Indication: Vascular device infection
     Dosage: 2 GRAM
     Route: 042
     Dates: start: 20180825, end: 20180829
  29. CEFEPIME [Concomitant]
     Active Substance: CEFEPIME HYDROCHLORIDE
     Indication: Sepsis
     Dosage: 50 MILLILITER
     Route: 042
     Dates: start: 20180829, end: 20180902
  30. VANCOMYCIN [Concomitant]
     Active Substance: VANCOMYCIN
     Indication: Vascular device infection
     Dosage: 1250 MILLIGRAM
     Route: 042
     Dates: start: 20180826, end: 20180827
  31. VANCOMYCIN [Concomitant]
     Active Substance: VANCOMYCIN
     Indication: Sepsis
  32. PHYTONADIONE [Concomitant]
     Active Substance: PHYTONADIONE
     Indication: Deep vein thrombosis
     Dosage: 5 MILLIGRAM, QD
     Route: 048
     Dates: start: 20180826, end: 20180829
  33. ACETAMINOPHEN [Concomitant]
     Active Substance: ACETAMINOPHEN
     Indication: Pyrexia
     Dosage: 500 MILLIGRAM, QD
     Route: 048
     Dates: start: 20180826, end: 20180909
  34. ACETAMINOPHEN [Concomitant]
     Active Substance: ACETAMINOPHEN
     Indication: Pain
  35. CALCIUM CITRATE [Concomitant]
     Active Substance: CALCIUM CITRATE
     Indication: Mineral deficiency
     Dosage: 475 MILLIGRAM, QD
     Route: 048
     Dates: start: 20180826, end: 20180829

REACTIONS (1)
  - Abortion spontaneous [Unknown]
